FAERS Safety Report 6736761-6 (Version None)
Quarter: 2010Q2

REPORT INFORMATION
  Report Type: 
  Country: None (occurrence: None)
  Receive Date: 20100521
  Receipt Date: 20100513
  Transmission Date: 20101027
  Serious: Yes (Other)
  Sender: FDA-Public Use
  Company Number: US-PFIZER INC-2010060772

PATIENT
  Sex: Female
  Weight: 84 kg

DRUGS (4)
  1. NEURONTIN [Suspect]
     Indication: HYPOAESTHESIA FACIAL
     Dosage: 300 MG, 3X/DAY
     Route: 048
     Dates: start: 20090101
  2. CARVEDILOL [Concomitant]
     Indication: HYPERTENSION
     Dosage: UNK
  3. AMLODIPINE [Concomitant]
     Indication: HYPERTENSION
     Dosage: UNK
  4. PREDNISONE [Concomitant]
     Indication: SYSTEMIC LUPUS ERYTHEMATOSUS
     Dosage: 5 MG, 1X/DAY

REACTIONS (4)
  - DRUG INEFFECTIVE [None]
  - HEADACHE [None]
  - HYPOAESTHESIA FACIAL [None]
  - WEIGHT INCREASED [None]
